FAERS Safety Report 10152247 (Version 1)
Quarter: 2014Q2

REPORT INFORMATION
  Report Type: Spontaneous
  Country: US (occurrence: US)
  Receive Date: 20140505
  Receipt Date: 20140505
  Transmission Date: 20141212
  Serious: Yes (Hospitalization, Other)
  Sender: FDA-Public Use
  Company Number: US-AMGEN-USASP2014031896

PATIENT
  Age: 60 Year
  Sex: Female

DRUGS (2)
  1. ENBREL [Suspect]
     Indication: RHEUMATOID ARTHRITIS
     Dosage: 50 MG, QWK
     Route: 065
     Dates: start: 20131030
  2. METHOTREXATE [Concomitant]
     Dosage: UNK
     Dates: start: 20131003

REACTIONS (5)
  - Nephrolithiasis [Recovered/Resolved]
  - Pyelonephritis [Recovered/Resolved]
  - Myalgia [Not Recovered/Not Resolved]
  - Tooth extraction [Recovered/Resolved]
  - Fibromyalgia [Not Recovered/Not Resolved]
